FAERS Safety Report 10187071 (Version 1)
Quarter: 2014Q2

REPORT INFORMATION
  Report Type: Spontaneous
  Country: IT (occurrence: IT)
  Receive Date: 20140522
  Receipt Date: 20140522
  Transmission Date: 20141212
  Serious: Yes (Hospitalization)
  Sender: FDA-Public Use
  Company Number: IT-BRISTOL-MYERS SQUIBB COMPANY-20726907

PATIENT
  Age: 80 Year
  Sex: Female

DRUGS (8)
  1. COUMADIN TABS 5 MG [Suspect]
     Indication: ATRIAL FIBRILLATION
     Dosage: 1 DF=1 UNIT NOS
     Route: 048
     Dates: start: 20140101, end: 20140404
  2. LANOXIN MITE [Concomitant]
     Route: 048
  3. TRIATEC [Concomitant]
  4. DILATREND [Concomitant]
     Route: 048
  5. PARIET [Concomitant]
     Route: 048
  6. SINVACOR [Concomitant]
     Route: 048
  7. SEREUPIN [Concomitant]
     Route: 048
  8. ZYLORIC [Concomitant]
     Route: 048

REACTIONS (4)
  - Headache [Unknown]
  - Blood pressure increased [Unknown]
  - Vertigo [Unknown]
  - Vision blurred [Unknown]
